FAERS Safety Report 26183586 (Version 1)
Quarter: 2025Q4

REPORT INFORMATION
  Report Type: Spontaneous
  Country: US (occurrence: US)
  Receive Date: 20251221
  Receipt Date: 20251221
  Transmission Date: 20260118
  Serious: No
  Sender: GALDERMA
  Company Number: US-GALDERMA-US2025025641

PATIENT

DRUGS (1)
  1. NEMLUVIO [Suspect]
     Active Substance: NEMOLIZUMAB-ILTO
     Indication: Dermatitis atopic
     Dosage: 30 MILLIGRAMS
     Route: 058

REACTIONS (2)
  - Incorrect dose administered [Recovered/Resolved]
  - Product preparation issue [Recovered/Resolved]
